FAERS Safety Report 19793399 (Version 3)
Quarter: 2022Q1

REPORT INFORMATION
  Report Type: Report from Study
  Country: US (occurrence: US)
  Receive Date: 20210906
  Receipt Date: 20220215
  Transmission Date: 20220423
  Serious: Yes (Hospitalization)
  Sender: FDA-Public Use
  Company Number: NVSC2021US194963

PATIENT
  Age: 2 Year
  Sex: Male

DRUGS (3)
  1. AFINITOR DISPERZ [Suspect]
     Active Substance: EVEROLIMUS
     Indication: Seizure
     Dosage: 3 MG, QOD (ALTERNATING WITH 5MG)
     Route: 048
     Dates: start: 20210531
  2. AFINITOR DISPERZ [Suspect]
     Active Substance: EVEROLIMUS
     Dosage: 3 MG, Q2H
     Route: 048
  3. AFINITOR DISPERZ [Suspect]
     Active Substance: EVEROLIMUS
     Dosage: 3 MG, QD
     Route: 048
     Dates: start: 20220211

REACTIONS (9)
  - Rhinovirus infection [Unknown]
  - Febrile convulsion [Unknown]
  - Rhinorrhoea [Unknown]
  - Nasal congestion [Unknown]
  - Hand-foot-and-mouth disease [Unknown]
  - Eye swelling [Unknown]
  - Eye irritation [Unknown]
  - Illness [Recovering/Resolving]
  - Glossodynia [Unknown]

NARRATIVE: CASE EVENT DATE: 20210701
